FAERS Safety Report 25447149 (Version 1)
Quarter: 2025Q2

REPORT INFORMATION
  Report Type: Spontaneous
  Country: US (occurrence: None)
  Receive Date: 20250617
  Receipt Date: 20250617
  Transmission Date: 20250716
  Serious: No
  Sender: FDA-CTU
  Company Number: None

PATIENT
  Age: 75 Year
  Sex: Male

DRUGS (1)
  1. POMALYST [Suspect]
     Active Substance: POMALIDOMIDE
     Indication: Plasma cell myeloma
     Dosage: 3MG QD ORAL
     Route: 048
     Dates: start: 20250304, end: 20250612

REACTIONS (7)
  - Dyspnoea [None]
  - Septic shock [None]
  - Staphylococcus test positive [None]
  - Pneumonia klebsiella [None]
  - Atrial fibrillation [None]
  - Cerebrovascular accident [None]
  - General physical health deterioration [None]

NARRATIVE: CASE EVENT DATE: 20250612
